FAERS Safety Report 9274598 (Version 1)
Quarter: 2013Q2

REPORT INFORMATION
  Report Type: Spontaneous
  Country: US (occurrence: None)
  Receive Date: 20130429
  Receipt Date: 20130429
  Transmission Date: 20140414
  Serious: Yes (Other)
  Sender: FDA-Public Use
  Company Number: SYM-2013-03041

PATIENT
  Age: 63 Year
  Sex: Female

DRUGS (11)
  1. FLUOROURACIL (FLUOROURACIL) (FLUOROURACIL) [Suspect]
     Indication: COLON CANCER METASTATIC
  2. FLUOROURACIL (FLUOROURACIL) (FLUOROURACIL) [Suspect]
  3. FLUOROURACIL (FLUOROURACIL) (FLUOROURACIL) [Suspect]
  4. FLUOROURACIL (FLUOROURACIL) (FLUOROURACIL) [Suspect]
  5. FLUOROURACIL (FLUOROURACIL) (FLUOROURACIL) [Suspect]
  6. FLUOROURACIL (FLUOROURACIL) (FLUOROURACIL) [Suspect]
  7. METFORMIN [Suspect]
     Indication: DIABETES MELLITUS
  8. CAPECITABINE [Suspect]
     Indication: COLON CANCER METASTATIC
  9. IRINOTECAN (IRINOTECAN) [Suspect]
     Indication: COLON CANCER METASTATIC
  10. FOLINIC ACID (FOLINIC ACID)(FOLINIC ACID) [Suspect]
     Indication: COLON CANCER METASTATIC
  11. AVASTIN (BEVACIZUMAB) [Suspect]
     Indication: COLON CANCER METASTATIC

REACTIONS (3)
  - Malabsorption [None]
  - Hypomagnesaemia [None]
  - Condition aggravated [None]
